FAERS Safety Report 18204446 (Version 1)
Quarter: 2020Q3

REPORT INFORMATION
  Report Type: Spontaneous
  Country: NL (occurrence: FR)
  Receive Date: 20200827
  Receipt Date: 20200827
  Transmission Date: 20201103
  Serious: Yes (Hospitalization)
  Sender: FDA-Public Use
  Company Number: FR-FRESENIUS KABI-FK202008691

PATIENT
  Age: 76 Year
  Sex: Male
  Weight: 99 kg

DRUGS (5)
  1. CASPOFUNGIN ACETATE FOR INJECTION [Suspect]
     Active Substance: CASPOFUNGIN ACETATE
     Indication: SEPTIC SHOCK
     Route: 041
     Dates: start: 20200720
  2. VANCOMYCIN HYDROCHLORIDE. [Suspect]
     Active Substance: VANCOMYCIN HYDROCHLORIDE
     Indication: SEPTIC SHOCK
     Dosage: THEN 2500MG INTRAVENOUS WITH ELECTRICAL SYRINGE
     Route: 041
     Dates: start: 20200720, end: 20200720
  3. TAZOBACTAM SODIUM/CEFTOLOZANE SULFATE [Suspect]
     Active Substance: CEFTOLOZANE SULFATE\TAZOBACTAM SODIUM
     Indication: SEPTIC SHOCK
     Dosage: UNKNOWN
     Route: 041
     Dates: start: 20200720
  4. IOMEPROL [Suspect]
     Active Substance: IOMEPROL
     Indication: COMPUTERISED TOMOGRAM
     Dosage: NOT KNOWN
     Route: 042
     Dates: start: 20200723, end: 20200723
  5. PANTOPRAZOLE SODIUM SESQUIHYDRATE [Suspect]
     Active Substance: PANTOPRAZOLE SODIUM
     Indication: GASTRIC HAEMORRHAGE
     Route: 041
     Dates: start: 20200711, end: 20200724

REACTIONS (1)
  - Drug reaction with eosinophilia and systemic symptoms [Recovering/Resolving]

NARRATIVE: CASE EVENT DATE: 20200725
